FAERS Safety Report 5448672-7 (Version None)
Quarter: 2007Q3

REPORT INFORMATION
  Report Type: 
  Country: None (occurrence: None)
  Receive Date: 20070911
  Receipt Date: 20070906
  Transmission Date: 20080115
  Serious: Yes (Hospitalization)
  Sender: FDA-Public Use
  Company Number: TH-BAYER-200714898GDS

PATIENT
  Age: 80 Year
  Sex: Male
  Weight: 71 kg

DRUGS (12)
  1. SORAFENIB [Suspect]
     Indication: RENAL CELL CARCINOMA STAGE UNSPECIFIED
     Dosage: TOTAL DAILY DOSE: 800 MG
     Route: 048
     Dates: start: 20070810, end: 20070815
  2. SORAFENIB [Suspect]
     Dosage: TOTAL DAILY DOSE: 800 MG
     Route: 048
     Dates: start: 20070521, end: 20070804
  3. NEXIUM [Concomitant]
     Indication: PROPHYLAXIS AGAINST GASTROINTESTINAL ULCER
     Route: 048
     Dates: start: 20070507, end: 20070802
  4. FBC [Concomitant]
     Indication: VITAMIN SUPPLEMENTATION
     Route: 048
     Dates: start: 20070411
  5. FOLIC ACID [Concomitant]
     Indication: VITAMIN SUPPLEMENTATION
     Route: 048
     Dates: start: 19970101
  6. BISOPROLOL FUMARATE [Concomitant]
     Indication: CARDIAC DISORDER
     Route: 048
     Dates: start: 19970101
  7. TANAKAN [Concomitant]
     Indication: VITAMIN SUPPLEMENTATION
     Route: 048
     Dates: start: 20060101
  8. ISOTRATE [Concomitant]
     Indication: CARDIAC DISORDER
     Route: 048
     Dates: start: 19970101
  9. VITAMIN B1-6-12 [Concomitant]
     Indication: VITAMIN SUPPLEMENTATION
     Route: 048
     Dates: start: 20040101
  10. VITAMIN B1-6-12 [Concomitant]
     Route: 048
     Dates: start: 20070818
  11. CLONAZEPAM [Concomitant]
     Indication: INSOMNIA
     Route: 048
     Dates: start: 20070816
  12. VASTEROL [Concomitant]
     Indication: CARDIAC DISORDER
     Dates: start: 20070818

REACTIONS (2)
  - GASTROINTESTINAL HAEMORRHAGE [None]
  - OEDEMA PERIPHERAL [None]
